FAERS Safety Report 5550128-8 (Version None)
Quarter: 2007Q4

REPORT INFORMATION
  Report Type: 
  Country: None (occurrence: None)
  Receive Date: 20071212
  Receipt Date: 20070424
  Transmission Date: 20080405
  Serious: No
  Sender: FDA-Public Use
  Company Number: US-AMGEN-KDL218851

PATIENT
  Sex: Female

DRUGS (1)
  1. ENBREL [Suspect]
     Indication: PSORIASIS
     Route: 058
     Dates: start: 20070226

REACTIONS (16)
  - BACK PAIN [None]
  - BONE DISORDER [None]
  - EOSINOPHIL COUNT INCREASED [None]
  - INJECTION SITE ERYTHEMA [None]
  - INJECTION SITE PRURITUS [None]
  - INJECTION SITE SWELLING [None]
  - INTERVERTEBRAL DISC DEGENERATION [None]
  - INTERVERTEBRAL DISC PROTRUSION [None]
  - JOINT STIFFNESS [None]
  - LUMBAR SPINAL STENOSIS [None]
  - LYMPHOCYTE COUNT INCREASED [None]
  - NERVE ROOT COMPRESSION [None]
  - NEUTROPHIL COUNT INCREASED [None]
  - OEDEMA PERIPHERAL [None]
  - PARAESTHESIA [None]
  - WHITE BLOOD CELL COUNT INCREASED [None]
